FAERS Safety Report 9652494 (Version 1)
Quarter: 2013Q4

REPORT INFORMATION
  Report Type: Spontaneous
  Country: US (occurrence: US)
  Receive Date: 20131029
  Receipt Date: 20131029
  Transmission Date: 20140711
  Serious: No
  Sender: FDA-Public Use
  Company Number: US-009507513-1310USA009766

PATIENT
  Age: 50 Year
  Sex: Female

DRUGS (5)
  1. SAPHRIS [Suspect]
     Indication: BIPOLAR DISORDER
     Dosage: 5 MG, QD IN THE EVENING
     Route: 060
     Dates: start: 201307
  2. WELLBUTRIN [Concomitant]
     Dosage: 150MG PER MORNING AND 2 TABLETS 150MG TABLETS TAKEN AT 3PM
     Route: 048
  3. DEPLIN [Concomitant]
     Dosage: 15 MG, EVERY MORNING
  4. LAMICTAL [Concomitant]
     Dosage: 100MG TAKEN 3 TABLETS AT BED TIME
     Route: 048
  5. VIGIL [Concomitant]
     Dosage: 150MG IN THE MORNING

REACTIONS (1)
  - Hepatic enzyme increased [Unknown]
